FAERS Safety Report 9879844 (Version 2)
Quarter: 2014Q2

REPORT INFORMATION
  Report Type: Spontaneous
  Country: JP (occurrence: JP)
  Receive Date: 20140206
  Receipt Date: 20140613
  Transmission Date: 20141212
  Serious: Yes (Hospitalization)
  Sender: FDA-Public Use
  Company Number: JP-B.I. PHARMACEUTICALS,INC./RIDGEFIELD-2014-BI-04290NB

PATIENT
  Age: 76 Year
  Sex: Female

DRUGS (4)
  1. TRAZENTA [Suspect]
     Indication: TYPE 2 DIABETES MELLITUS
     Dosage: 5 MG
     Route: 065
     Dates: start: 20131112, end: 20140128
  2. NOVORAPID [Concomitant]
     Indication: TYPE 2 DIABETES MELLITUS
     Route: 065
     Dates: start: 201310
  3. BASEN [Concomitant]
     Indication: TYPE 2 DIABETES MELLITUS
     Route: 065
     Dates: start: 201310
  4. UNKNOWN DRUG [Concomitant]
     Indication: PULMONARY FIBROSIS
     Route: 065
     Dates: start: 201310

REACTIONS (1)
  - Intestinal obstruction [Recovered/Resolved]
